FAERS Safety Report 4887125-1 (Version None)
Quarter: 2006Q1

REPORT INFORMATION
  Report Type: 
  Country: None (occurrence: None)
  Receive Date: 20060120
  Receipt Date: 20051005
  Transmission Date: 20060701
  Serious: Yes (Hospitalization, Other)
  Sender: FDA-Public Use
  Company Number: US-MERCK-0510USA05589

PATIENT
  Age: 77 Year
  Sex: Female
  Weight: 66 kg

DRUGS (2)
  1. VIOXX [Suspect]
     Indication: OSTEOARTHRITIS
     Route: 048
     Dates: start: 19990101, end: 20041001
  2. TYLENOL (CAPLET) [Concomitant]
     Route: 065

REACTIONS (5)
  - BREAST CANCER [None]
  - BREAST CANCER FEMALE [None]
  - DYSPNOEA [None]
  - EMOTIONAL DISORDER [None]
  - ISCHAEMIC STROKE [None]
